FAERS Safety Report 11023414 (Version 2)
Quarter: 2016Q1

REPORT INFORMATION
  Report Type: Spontaneous
  Country: JP (occurrence: JP)
  Receive Date: 20150413
  Receipt Date: 20160310
  Transmission Date: 20160525
  Serious: No
  Sender: FDA-Public Use
  Company Number: JP-TAKEDA-2015TUS004258

PATIENT
  Age: 75 Year
  Sex: Male
  Weight: 70 kg

DRUGS (4)
  1. FEBURIC [Suspect]
     Active Substance: FEBUXOSTAT
     Indication: HYPERURICAEMIA
     Dosage: 10 MG, QD
     Route: 048
     Dates: start: 201501, end: 20150331
  2. XYZAL [Concomitant]
     Active Substance: LEVOCETIRIZINE DIHYDROCHLORIDE
     Indication: URTICARIA CHRONIC
     Dosage: 5 MG, QD
     Route: 048
     Dates: start: 20130530
  3. PABRON G [Suspect]
     Active Substance: AMINOPHENAZONE\CAFFEINE\CALCIUM\CHLORPHENIRAMINE\DIHYDROCODEINE\GUAIFENESIN\METAMIZOLE\METHYLEPHEDRINE\RIBOFLAVIN\TAURINE\THIAMINE
     Indication: NASOPHARYNGITIS
     Dosage: 2 DF, UNK
     Route: 048
     Dates: end: 20150323
  4. FEBURIC [Suspect]
     Active Substance: FEBUXOSTAT
     Dosage: 10 MG, QD
     Route: 048
     Dates: end: 20130530

REACTIONS (1)
  - Toxic skin eruption [Recovered/Resolved]

NARRATIVE: CASE EVENT DATE: 20150322
